FAERS Safety Report 15680309 (Version 1)
Quarter: 2018Q4

REPORT INFORMATION
  Report Type: Spontaneous
  Country: US (occurrence: US)
  Receive Date: 20181202
  Receipt Date: 20181202
  Transmission Date: 20190205
  Serious: Yes (Other)
  Sender: FDA-Public Use
  Company Number: None

PATIENT
  Age: 53 Year
  Sex: Female

DRUGS (1)
  1. AIMOVIG [Suspect]
     Active Substance: ERENUMAB-AOOE
     Indication: PROPHYLAXIS AGAINST HIV INFECTION
     Dosage: ?          OTHER FREQUENCY:MONTLY;?
     Route: 058
     Dates: start: 20180820

REACTIONS (2)
  - Constipation [None]
  - Bowel movement irregularity [None]

NARRATIVE: CASE EVENT DATE: 20180924
